FAERS Safety Report 23440604 (Version 2)
Quarter: 2024Q1

REPORT INFORMATION
  Report Type: Spontaneous
  Country: US (occurrence: US)
  Receive Date: 20240125
  Receipt Date: 20240209
  Transmission Date: 20240409
  Serious: No
  Sender: FDA-Public Use
  Company Number: US-GILEAD-2024-0659281

PATIENT

DRUGS (1)
  1. BIKTARVY [Suspect]
     Active Substance: BICTEGRAVIR SODIUM\EMTRICITABINE\TENOFOVIR ALAFENAMIDE FUMARATE
     Indication: Product used for unknown indication
     Dosage: UNK
     Route: 065

REACTIONS (6)
  - Unevaluable event [Unknown]
  - Haematoma [Unknown]
  - Pain [Unknown]
  - Heart rate increased [Unknown]
  - Dyspnoea [Unknown]
  - Coinfection [Unknown]

NARRATIVE: CASE EVENT DATE: 20211206
